FAERS Safety Report 11274452 (Version 2)
Quarter: 2015Q3

REPORT INFORMATION
  Report Type: Spontaneous
  Country: US (occurrence: US)
  Receive Date: 20150715
  Receipt Date: 20150807
  Transmission Date: 20151125
  Serious: Yes (Death, Other)
  Sender: FDA-Public Use
  Company Number: US-ACTELION-A-US2015-120689

PATIENT
  Age: 23 Year
  Sex: Female

DRUGS (9)
  1. VANCOMYCIN [Concomitant]
     Active Substance: VANCOMYCIN
  2. OPSUMIT [Suspect]
     Active Substance: MACITENTAN
     Indication: PRODUCT USED FOR UNKNOWN INDICATION
     Route: 048
  3. DAPTOMYCIN. [Concomitant]
     Active Substance: DAPTOMYCIN
  4. VELETRI [Suspect]
     Active Substance: EPOPROSTENOL
     Indication: PRODUCT USED FOR UNKNOWN INDICATION
     Dosage: 9 NG/KG, PER MIN
     Route: 042
     Dates: start: 20150617, end: 20150701
  5. DOXYCYCLINE. [Concomitant]
     Active Substance: DOXYCYCLINE
  6. LINEZOLID. [Concomitant]
     Active Substance: LINEZOLID
  7. CLINDAMYCIN [Concomitant]
     Active Substance: CLINDAMYCIN\CLINDAMYCIN PHOSPHATE
  8. ZOSYN [Concomitant]
     Active Substance: PIPERACILLIN SODIUM\TAZOBACTAM SODIUM
  9. MERREM [Concomitant]
     Active Substance: MEROPENEM

REACTIONS (6)
  - Pulmonary arterial hypertension [Fatal]
  - Blood pressure decreased [Unknown]
  - Right ventricular failure [Fatal]
  - Pulseless electrical activity [Fatal]
  - Shock [Fatal]
  - Cardiac arrest [Fatal]

NARRATIVE: CASE EVENT DATE: 20150701
